FAERS Safety Report 9944228 (Version 1)
Quarter: 2014Q1

REPORT INFORMATION
  Report Type: Report from Study
  Country: US (occurrence: US)
  Receive Date: 20140303
  Receipt Date: 20140303
  Transmission Date: 20141002
  Serious: No
  Sender: FDA-Public Use
  Company Number: US-ABBVIE-13P-163-1048476-00

PATIENT
  Sex: Male

DRUGS (3)
  1. HUMIRA [Suspect]
     Indication: CROHN^S DISEASE
     Route: 058
     Dates: start: 20121213
  2. HUMIRA [Suspect]
     Indication: ARTHRITIS
  3. ANTIBIOTICS [Concomitant]
     Indication: DENTAL OPERATION
     Dosage: UNKNOWN

REACTIONS (3)
  - Urticaria [Unknown]
  - Candida infection [Recovered/Resolved]
  - Rash [Recovered/Resolved]
